FAERS Safety Report 8772735 (Version 2)
Quarter: 2013Q4

REPORT INFORMATION
  Report Type: Spontaneous
  Country: US (occurrence: US)
  Receive Date: 20120906
  Receipt Date: 20131101
  Transmission Date: 20140711
  Serious: No
  Sender: FDA-Public Use
  Company Number: US-009507513-1208USA012304

PATIENT
  Age: 50 Year
  Sex: Female

DRUGS (2)
  1. SAPHRIS [Suspect]
     Indication: BIPOLAR DISORDER
     Dosage: 10 MG,HS
     Route: 060
  2. SAPHRIS [Suspect]
     Dosage: 5 MG, HS
     Route: 060

REACTIONS (2)
  - Mouth ulceration [Unknown]
  - Underdose [Unknown]
